FAERS Safety Report 17079469 (Version 2)
Quarter: 2021Q4

REPORT INFORMATION
  Report Type: Spontaneous
  Country: US (occurrence: US)
  Receive Date: 20191127
  Receipt Date: 20211129
  Transmission Date: 20220303
  Serious: No
  Sender: FDA-Public Use
  Company Number: US-UCBSA-2019021563

PATIENT
  Sex: Male

DRUGS (4)
  1. VIMPAT [Interacting]
     Active Substance: LACOSAMIDE
     Indication: Seizure
     Dosage: 100 MILLIGRAM, 2X/DAY (BID)
  2. AMLODIPINE [Suspect]
     Active Substance: AMLODIPINE BESYLATE
     Indication: Hypertension
     Dosage: 2.5 MILLIGRAM, ONCE DAILY (QD)
     Dates: start: 201812
  3. AMLODIPINE [Suspect]
     Active Substance: AMLODIPINE BESYLATE
     Dosage: 3.75 MILLIGRAM, ONCE DAILY (QD)
     Dates: start: 201902
  4. OLMESARTAN MEDOXOMIL [Concomitant]
     Active Substance: OLMESARTAN MEDOXOMIL
     Indication: Hypertension
     Dosage: 40 MILLIGRAM, ONCE DAILY (QD)

REACTIONS (3)
  - Asthenia [Recovering/Resolving]
  - Fatigue [Recovering/Resolving]
  - Drug interaction [Recovering/Resolving]
